FAERS Safety Report 6565137-X (Version None)
Quarter: 2010Q1

REPORT INFORMATION
  Report Type: 
  Country: None (occurrence: None)
  Receive Date: 20100201
  Receipt Date: 20100122
  Transmission Date: 20100710
  Serious: Yes (Other)
  Sender: FDA-Public Use
  Company Number: B0578070A

PATIENT
  Age: 52 Year
  Sex: Female
  Weight: 62 kg

DRUGS (2)
  1. AUGMENTIN '125' [Suspect]
     Indication: PROPHYLAXIS
     Dosage: 2.2G PER DAY
     Route: 042
     Dates: start: 20090309, end: 20090309
  2. MANNITOL [Suspect]
     Indication: DRUG USE FOR UNKNOWN INDICATION
     Route: 048

REACTIONS (3)
  - DEHYDRATION [None]
  - MEDICAL DEVICE COMPLICATION [None]
  - MEDICATION CRYSTALS IN URINE [None]
